FAERS Safety Report 24250979 (Version 1)
Quarter: 2024Q3

REPORT INFORMATION
  Report Type: Spontaneous
  Country: US (occurrence: None)
  Receive Date: 20240825
  Receipt Date: 20240825
  Transmission Date: 20241017
  Serious: Yes (unspecified)
  Sender: Public
  Company Number: None

PATIENT
  Age: 35 Year
  Sex: Female

DRUGS (1)
  1. NURTEC ODT [Suspect]
     Active Substance: RIMEGEPANT SULFATE
     Indication: Migraine prophylaxis
     Dosage: OTHER FREQUENCY : EVERY OTHER DAY;?
     Route: 060
     Dates: start: 20240427, end: 20240806

REACTIONS (3)
  - Hepatic enzyme increased [None]
  - Cholelithiasis [None]
  - Abdominal pain upper [None]

NARRATIVE: CASE EVENT DATE: 20240526
